FAERS Safety Report 9546792 (Version 1)
Quarter: 2013Q3

REPORT INFORMATION
  Report Type: Spontaneous
  Country: US (occurrence: US)
  Receive Date: 20130924
  Receipt Date: 20130924
  Transmission Date: 20140515
  Serious: No
  Sender: FDA-Public Use
  Company Number: US-009507513-1309USA000294

PATIENT
  Sex: Female

DRUGS (1)
  1. LIPTRUZET [Suspect]
     Indication: BLOOD CHOLESTEROL INCREASED
     Dosage: 10/40 MG, FREQENCY UNSPECIFIED
     Route: 048

REACTIONS (4)
  - Feeling jittery [Unknown]
  - Vomiting [Unknown]
  - Nausea [Unknown]
  - Paraesthesia [Unknown]
